FAERS Safety Report 25012838 (Version 1)
Quarter: 2025Q1

REPORT INFORMATION
  Report Type: Spontaneous
  Country: PL (occurrence: PL)
  Receive Date: 20250226
  Receipt Date: 20250226
  Transmission Date: 20250408
  Serious: Yes (Other)
  Sender: MYLAN
  Company Number: PL-MYLANLABS-2025M1015747

PATIENT
  Age: 41 Year
  Sex: Male

DRUGS (9)
  1. LEVETIRACETAM [Suspect]
     Active Substance: LEVETIRACETAM
     Indication: Myoclonus
     Dosage: 3000 MILLIGRAM, QD
  2. LEVETIRACETAM [Suspect]
     Active Substance: LEVETIRACETAM
     Indication: Epilepsy
  3. TOPIRAMATE [Suspect]
     Active Substance: TOPIRAMATE
     Indication: Myoclonus
     Dosage: 400 MILLIGRAM, QD
  4. TOPIRAMATE [Suspect]
     Active Substance: TOPIRAMATE
     Indication: Epilepsy
  5. VALPROIC ACID [Suspect]
     Active Substance: VALPROIC ACID
     Indication: Myoclonus
     Dosage: 1000 MILLIGRAM, QD
  6. VALPROIC ACID [Suspect]
     Active Substance: VALPROIC ACID
     Indication: Epilepsy
  7. CLONAZEPAM [Suspect]
     Active Substance: CLONAZEPAM
     Indication: Myoclonus
     Dosage: 4 MILLIGRAM, QD
  8. CLONAZEPAM [Suspect]
     Active Substance: CLONAZEPAM
     Indication: Epilepsy
  9. PROPRANOLOL [Suspect]
     Active Substance: PROPRANOLOL HYDROCHLORIDE
     Indication: Intention tremor
     Dosage: 60 MILLIGRAM, QD

REACTIONS (1)
  - Drug ineffective [Unknown]
